FAERS Safety Report 23388599 (Version 1)
Quarter: 2024Q1

REPORT INFORMATION
  Report Type: Spontaneous
  Country: None (occurrence: MY)
  Receive Date: 20240110
  Receipt Date: 20240110
  Transmission Date: 20240410
  Serious: Yes (Other)
  Sender: FDA-Public Use
  Company Number: MY-Harrow Eye-2150880

PATIENT
  Age: 58 Year
  Sex: Male

DRUGS (1)
  1. NEVANAC [Suspect]
     Active Substance: NEPAFENAC
     Indication: Cystoid macular oedema
     Route: 061

REACTIONS (2)
  - Disease progression [Recovering/Resolving]
  - Drug ineffective [Unknown]
